FAERS Safety Report 7704844-X (Version None)
Quarter: 2011Q3

REPORT INFORMATION
  Report Type: 
  Country: None (occurrence: None)
  Receive Date: 20110823
  Receipt Date: 20110819
  Transmission Date: 20111222
  Serious: Yes (Death)
  Sender: FDA-Public Use
  Company Number: CO-PFIZER INC-2011162081

PATIENT
  Age: 52 Year
  Sex: Male

DRUGS (2)
  1. TYGACIL [Suspect]
     Dosage: 50 MG, 2X/DAY
     Dates: start: 20110415, end: 20110523
  2. TYGACIL [Suspect]
     Indication: SEPSIS
     Dosage: 100 MG, 2X/DAY
     Dates: start: 20110415

REACTIONS (1)
  - DRUG INEFFECTIVE [None]
